FAERS Safety Report 5675930-3 (Version None)
Quarter: 2008Q1

REPORT INFORMATION
  Report Type: 
  Country: None (occurrence: None)
  Receive Date: 20080321
  Receipt Date: 20080317
  Transmission Date: 20080703
  Serious: Yes (Hospitalization)
  Sender: FDA-Public Use
  Company Number: B0513064A

PATIENT
  Age: 4 Month
  Sex: Female

DRUGS (1)
  1. ZOVIRAX [Suspect]
     Indication: VARICELLA
     Route: 042
     Dates: start: 20080130, end: 20080203

REACTIONS (4)
  - DECUBITUS ULCER [None]
  - EXTRAVASATION [None]
  - INJECTION SITE NECROSIS [None]
  - INJECTION SITE OEDEMA [None]
